FAERS Safety Report 24911002 (Version 1)
Quarter: 2025Q1

REPORT INFORMATION
  Report Type: Report from Study
  Country: US (occurrence: US)
  Receive Date: 20250131
  Receipt Date: 20250131
  Transmission Date: 20250408
  Serious: Yes (Hospitalization)
  Sender: EISAI
  Company Number: US-Eisai-EC-2024-179769

PATIENT
  Age: 62 Year
  Sex: Female
  Weight: 74 kg

DRUGS (8)
  1. LENVIMA [Suspect]
     Active Substance: LENVATINIB
     Indication: Renal cancer
     Route: 048
     Dates: start: 20241028, end: 20241119
  2. LENVIMA [Suspect]
     Active Substance: LENVATINIB
     Dosage: LOWERED DOSE (DOSE UNKNOWN)
     Route: 048
     Dates: start: 2024
  3. ABILIFY [Concomitant]
     Active Substance: ARIPIPRAZOLE
  4. ASPIRIN [Concomitant]
     Active Substance: ASPIRIN
  5. KEYTRUDA [Concomitant]
     Active Substance: PEMBROLIZUMAB
  6. LIPITOR [Concomitant]
     Active Substance: ATORVASTATIN CALCIUM
  7. NEXIUM [Concomitant]
     Active Substance: ESOMEPRAZOLE MAGNESIUM
  8. ZOLOFT [Concomitant]
     Active Substance: SERTRALINE HYDROCHLORIDE

REACTIONS (3)
  - Escherichia infection [Not Recovered/Not Resolved]
  - Colitis [Not Recovered/Not Resolved]
  - Norovirus infection [Not Recovered/Not Resolved]

NARRATIVE: CASE EVENT DATE: 20241119
